FAERS Safety Report 5500276-3 (Version None)
Quarter: 2007Q4

REPORT INFORMATION
  Report Type: 
  Country: None (occurrence: None)
  Receive Date: 20071025
  Receipt Date: 20071012
  Transmission Date: 20080405
  Serious: Yes (Death)
  Sender: FDA-Public Use
  Company Number: S07-FRA-05571-01

PATIENT
  Age: 84 Year
  Sex: Female

DRUGS (3)
  1. MEMANTINE HCL [Suspect]
     Indication: DEMENTIA ALZHEIMER'S TYPE
     Dosage: 10 MG QD PO
     Route: 048
     Dates: start: 20070424, end: 20070702
  2. EQUANIL [Concomitant]
  3. CHLORURE POTASSIUM (POTASSIUM CHLORIDE) [Concomitant]

REACTIONS (1)
  - DEATH [None]
